FAERS Safety Report 4702163-7 (Version None)
Quarter: 2005Q2

REPORT INFORMATION
  Report Type: 
  Country: None (occurrence: None)
  Receive Date: 20050629
  Receipt Date: 20050613
  Transmission Date: 20051028
  Serious: Yes (Hospitalization)
  Sender: FDA-Public Use
  Company Number: 200515457GDDC

PATIENT
  Age: 75 Year
  Sex: Female

DRUGS (5)
  1. EUGLUCON [Suspect]
     Indication: BLOOD GLUCOSE DECREASED
     Dosage: DOSE: 1.25 MG 1 X PER DAY
     Route: 048
     Dates: start: 20041215, end: 20050531
  2. MEVALOTIN [Concomitant]
     Indication: HYPERLIPIDAEMIA
  3. LONGES [Concomitant]
  4. FRANDOL [Concomitant]
  5. BLOPRESS [Concomitant]

REACTIONS (1)
  - IDIOPATHIC THROMBOCYTOPENIC PURPURA [None]
